FAERS Safety Report 8096104-5 (Version None)
Quarter: 2012Q1

REPORT INFORMATION
  Report Type: 
  Country: None (occurrence: None)
  Receive Date: 20120131
  Receipt Date: 20120125
  Transmission Date: 20120608
  Serious: Yes (Hospitalization)
  Sender: FDA-Public Use
  Company Number: US-GLAXOSMITHKLINE-A0903163A

PATIENT
  Age: 49 Year
  Sex: Female
  Weight: 66.4 kg

DRUGS (6)
  1. GLUCOTROL [Concomitant]
  2. AMITRIPTYLINE HCL [Concomitant]
  3. AVANDIA [Suspect]
     Indication: DIABETES MELLITUS
     Dosage: 4MG TWICE PER DAY
     Route: 048
     Dates: start: 20030301, end: 20041119
  4. INSULIN [Concomitant]
  5. METFORMIN HCL [Concomitant]
  6. FERREX [Concomitant]

REACTIONS (3)
  - CARDIOVASCULAR DISORDER [None]
  - NEUROPATHY PERIPHERAL [None]
  - CEREBROVASCULAR ACCIDENT [None]
